FAERS Safety Report 6705247-7 (Version None)
Quarter: 2010Q2

REPORT INFORMATION
  Report Type: 
  Country: None (occurrence: None)
  Receive Date: 20100430
  Receipt Date: 20100419
  Transmission Date: 20101027
  Serious: Yes (Hospitalization)
  Sender: FDA-Public Use
  Company Number: US-ELI_LILLY_AND_COMPANY-US201004006927

PATIENT
  Sex: Female

DRUGS (2)
  1. ZYPREXA RELPREVV [Suspect]
     Indication: SCHIZOPHRENIA
     Dosage: 300 MG, UNK
     Route: 030
     Dates: end: 20100412
  2. ZYPREXA [Suspect]
     Indication: SCHIZOPHRENIA
     Dosage: 1 D/F, UNK
     Route: 048

REACTIONS (3)
  - AGGRESSION [None]
  - AGITATION [None]
  - PSYCHIATRIC DECOMPENSATION [None]
